FAERS Safety Report 18415559 (Version 1)
Quarter: 2020Q4

REPORT INFORMATION
  Report Type: Spontaneous
  Country: US (occurrence: US)
  Receive Date: 20201022
  Receipt Date: 20201022
  Transmission Date: 20210114
  Serious: Yes (Other)
  Sender: FDA-Public Use
  Company Number: None

PATIENT
  Age: 39 Year
  Sex: Male
  Weight: 93.7 kg

DRUGS (6)
  1. TACROLIMUS. [Suspect]
     Active Substance: TACROLIMUS
     Indication: HEART TRANSPLANT
     Dates: start: 20180801, end: 20200512
  2. ASPIRIN 81MG [Concomitant]
     Active Substance: ASPIRIN
     Dates: start: 20180801
  3. SITAGLIPTIN 50MG [Concomitant]
     Dates: start: 20180801
  4. MYCOPHENOLATE 1,000MG [Concomitant]
     Dates: start: 20180801
  5. ATORVASTATIN 40MG [Concomitant]
     Active Substance: ATORVASTATIN
     Dates: start: 20180801
  6. FERROUS SULFATE 324MG [Concomitant]
     Dates: start: 20180801

REACTIONS (3)
  - Transplant rejection [None]
  - Immunosuppression [None]
  - Cardioactive drug level below therapeutic [None]

NARRATIVE: CASE EVENT DATE: 20200512
